FAERS Safety Report 4651877-6 (Version None)
Quarter: 2005Q2

REPORT INFORMATION
  Report Type: 
  Country: None (occurrence: None)
  Receive Date: 20050504
  Receipt Date: 20050405
  Transmission Date: 20051028
  Serious: Yes (Death)
  Sender: FDA-Public Use
  Company Number: GB-GLAXOSMITHKLINE-B0376848A

PATIENT
  Age: 88 Year
  Sex: Female
  Weight: 50 kg

DRUGS (1)
  1. PAROXETINE HYDROCHLORIDE [Suspect]
     Indication: DRUG USE FOR UNKNOWN INDICATION
     Route: 065

REACTIONS (3)
  - ANTIDEPRESSANT DRUG LEVEL INCREASED [None]
  - BRONCHITIS ACUTE [None]
  - LOWER RESPIRATORY TRACT INFECTION [None]
